FAERS Safety Report 12774405 (Version 1)
Quarter: 2016Q3

REPORT INFORMATION
  Report Type: Spontaneous
  Country: US (occurrence: US)
  Receive Date: 20160922
  Receipt Date: 20160922
  Transmission Date: 20161109
  Serious: Yes (Hospitalization)
  Sender: FDA-Public Use
  Company Number: None

PATIENT
  Sex: Female

DRUGS (19)
  1. PREVACID [Concomitant]
     Active Substance: LANSOPRAZOLE
  2. EPOGEN [Concomitant]
     Active Substance: ERYTHROPOIETIN
  3. COLACE [Concomitant]
     Active Substance: DOCUSATE SODIUM
  4. CAYSTON [Concomitant]
     Active Substance: AZTREONAM
  5. AMITIZA [Concomitant]
     Active Substance: LUBIPROSTONE
  6. AQUADEKS [Concomitant]
     Active Substance: MINERALS\VITAMINS
  7. ZENPEP [Concomitant]
     Active Substance: PANCRELIPASE AMYLASE\PANCRELIPASE LIPASE\PANCRELIPASE PROTEASE
  8. NEPHYTON [Concomitant]
  9. MAGRESTROL [Concomitant]
  10. MIRALAX [Concomitant]
     Active Substance: POLYETHYLENE GLYCOL 3350
  11. RENVELA [Concomitant]
     Active Substance: SEVELAMER CARBONATE
  12. PAXIL [Concomitant]
     Active Substance: PAROXETINE HYDROCHLORIDE
  13. PULMOZYME [Concomitant]
     Active Substance: DORNASE ALFA
  14. BACTRIM [Concomitant]
     Active Substance: SULFAMETHOXAZOLE\TRIMETHOPRIM
  15. TOBRAMYCIN 300 MG PER 5 ML [Suspect]
     Active Substance: TOBRAMYCIN
     Indication: CYSTIC FIBROSIS
     Route: 055
     Dates: start: 20160623
  16. NU-IRON [Concomitant]
     Active Substance: FERRIC POLYSACCHARIDE COMPLEX
  17. URSIDIOL LIVER MEDICATION URSIDIOL 300MG [Concomitant]
     Active Substance: URSODIOL
  18. BUSPIRONE [Concomitant]
     Active Substance: BUSPIRONE HYDROCHLORIDE
  19. ZOFRAN [Concomitant]
     Active Substance: ONDANSETRON HYDROCHLORIDE

REACTIONS (3)
  - Asthenia [None]
  - Nephrolithiasis [None]
  - Feeling abnormal [None]

NARRATIVE: CASE EVENT DATE: 2016
